FAERS Safety Report 4878494-7 (Version None)
Quarter: 2006Q1

REPORT INFORMATION
  Report Type: 
  Country: None (occurrence: None)
  Receive Date: 20060112
  Receipt Date: 20060105
  Transmission Date: 20060701
  Serious: Yes (Death, Hospitalization, Disabling)
  Sender: FDA-Public Use
  Company Number: US-JNJFOC-20050804819

PATIENT
  Sex: Female
  Weight: 67.13 kg

DRUGS (13)
  1. INFLIXIMAB [Suspect]
     Route: 042
  2. INFLIXIMAB [Suspect]
     Route: 042
  3. INFLIXIMAB [Suspect]
     Route: 042
  4. INFLIXIMAB [Suspect]
     Route: 042
  5. INFLIXIMAB [Suspect]
     Route: 042
  6. INFLIXIMAB [Suspect]
     Route: 042
  7. INFLIXIMAB [Suspect]
     Route: 042
  8. INFLIXIMAB [Suspect]
     Route: 042
  9. INFLIXIMAB [Suspect]
     Indication: CROHN'S DISEASE
     Route: 042
  10. MESALAMINE [Suspect]
     Indication: CROHN'S DISEASE
  11. NARCOTIC ANALGESICS [Suspect]
     Indication: CROHN'S DISEASE
  12. ANTIDEPRESSANTS [Suspect]
     Indication: CROHN'S DISEASE
  13. PREDNISONE [Suspect]
     Indication: CROHN'S DISEASE

REACTIONS (6)
  - ANAEMIA [None]
  - COLON CANCER STAGE IV [None]
  - DISEASE PROGRESSION [None]
  - METASTASES TO LIVER [None]
  - PELVIC MASS [None]
  - RECTAL CANCER METASTATIC [None]
